FAERS Safety Report 8889581 (Version 1)
Quarter: 2012Q4

REPORT INFORMATION
  Report Type: 
  Country: JP (occurrence: JP)
  Receive Date: 20121107
  Receipt Date: 20121107
  Transmission Date: 20130627
  Serious: Yes (Other)
  Sender: FDA-Public Use
  Company Number: PHHY2012JP100438

PATIENT
  Age: 51 Year
  Sex: Female

DRUGS (3)
  1. CICLOSPORIN [Suspect]
     Indication: PROPHYLAXIS AGAINST GRAFT VERSUS HOST DISEASE
     Dates: start: 2001
  2. CICLOSPORIN [Suspect]
     Indication: STEM CELL TRANSPLANT
  3. METHOTREXATE [Suspect]
     Indication: PROPHYLAXIS AGAINST GRAFT VERSUS HOST DISEASE
     Dates: start: 2001

REACTIONS (16)
  - Hepatic cirrhosis [Unknown]
  - Obliterative bronchiolitis [Unknown]
  - Hepatic atrophy [Unknown]
  - Oral lichen planus [Unknown]
  - Hepatocellular carcinoma [Recovered/Resolved]
  - Chronic graft versus host disease in liver [Unknown]
  - Acute graft versus host disease in skin [Unknown]
  - Acute graft versus host disease in intestine [Unknown]
  - Acute graft versus host disease in liver [Unknown]
  - Varices oesophageal [Unknown]
  - Ascites [Unknown]
  - Child-Pugh-Turcotte score increased [Unknown]
  - Graft versus host disease in lung [Unknown]
  - Chronic graft versus host disease [Unknown]
  - Lymphocytic infiltration [Unknown]
  - Portal hypertension [Unknown]
